FAERS Safety Report 11021060 (Version 2)
Quarter: 2015Q2

REPORT INFORMATION
  Report Type: Spontaneous
  Country: CN (occurrence: CN)
  Receive Date: 20150413
  Receipt Date: 20150416
  Transmission Date: 20150821
  Serious: Yes (Hospitalization)
  Sender: FDA-Public Use
  Company Number: CN-ABBVIE-15P-035-1374807-00

PATIENT
  Age: 43 Year
  Sex: Male
  Weight: 80 kg

DRUGS (2)
  1. LIPANTHYL [Suspect]
     Active Substance: FENOFIBRATE
     Indication: PRODUCT USED FOR UNKNOWN INDICATION
     Dosage: DINNER TIME
     Route: 048
     Dates: start: 20150209, end: 20150209
  2. LIPANTHYL [Suspect]
     Active Substance: FENOFIBRATE
     Dosage: LUNCH TIME
     Route: 048
     Dates: start: 20150306

REACTIONS (4)
  - Abdominal pain upper [Recovering/Resolving]
  - White blood cell count increased [Recovering/Resolving]
  - White blood cell count increased [Recovered/Resolved]
  - Abdominal pain upper [Recovered/Resolved]

NARRATIVE: CASE EVENT DATE: 20150210
